FAERS Safety Report 22541875 (Version 1)
Quarter: 2023Q2

REPORT INFORMATION
  Report Type: Spontaneous
  Country: US (occurrence: None)
  Receive Date: 20230608
  Receipt Date: 20230608
  Transmission Date: 20230722
  Serious: No
  Sender: FDA-Public Use
  Company Number: None

PATIENT
  Sex: Female

DRUGS (11)
  1. RETACRIT [Suspect]
     Active Substance: EPOETIN ALFA-EPBX
     Indication: Nephrogenic anaemia
     Dosage: OTHER STRENGTH : 40,000 UNITS/ML;?OTHER QUANTITY : 40,000 UNITS;?FREQUENCY : WEEKLY;?
     Route: 058
  2. METOPROLOL [Concomitant]
     Active Substance: METOPROLOL
  3. RANEXA [Concomitant]
     Active Substance: RANOLAZINE
  4. ISOSORBIDE [Concomitant]
     Active Substance: ISOSORBIDE
  5. VITAMINS [Concomitant]
     Active Substance: VITAMINS
  6. VITAMIN B12 [Concomitant]
     Active Substance: CYANOCOBALAMIN
  7. ELIQUIS [Concomitant]
     Active Substance: APIXABAN
  8. ATORVASTATIN [Concomitant]
     Active Substance: ATORVASTATIN
  9. AMLODIPINE [Concomitant]
     Active Substance: AMLODIPINE BESYLATE
  10. IRON [Concomitant]
     Active Substance: IRON
  11. PLAVIX [Concomitant]
     Active Substance: CLOPIDOGREL BISULFATE

REACTIONS (1)
  - Blood pressure decreased [None]
